FAERS Safety Report 5186354-X (Version None)
Quarter: 2006Q4

REPORT INFORMATION
  Report Type: 
  Country: None (occurrence: None)
  Receive Date: 20061220
  Receipt Date: 20060307
  Transmission Date: 20070319
  Serious: Yes (Hospitalization, Other)
  Sender: FDA-Public Use
  Company Number: US-ELI_LILLY_AND_COMPANY-US200606000264

PATIENT
  Age: 47 Year
  Sex: Female
  Weight: 84.353 kg

DRUGS (5)
  1. ZYPREXA [Suspect]
     Indication: ANXIETY
     Dosage: 5 MG, UNKNOWN
     Dates: start: 19900101, end: 20050101
  2. DEPAKOTE [Concomitant]
     Dosage: UNK, UNKNOWN
     Dates: start: 19890101, end: 20060101
  3. ZOLOFT [Concomitant]
     Dosage: UNK, UNKNOWN
     Dates: start: 19890101
  4. ZOLOFT [Concomitant]
     Dosage: UNK, UNKNOWN
     Dates: start: 19910101, end: 19990101
  5. PREDNISOLONE [Concomitant]
     Dosage: UNK, UNKNOWN
     Dates: start: 20000101

REACTIONS (5)
  - BLOOD CHOLESTEROL INCREASED [None]
  - CARDIAC DISORDER [None]
  - DIABETES MELLITUS [None]
  - METABOLIC DISORDER [None]
  - MYOCARDIAL ISCHAEMIA [None]
